FAERS Safety Report 5492386-4 (Version None)
Quarter: 2007Q4

REPORT INFORMATION
  Report Type: 
  Country: None (occurrence: None)
  Receive Date: 20071015
  Receipt Date: 20070717
  Transmission Date: 20080405
  Serious: No
  Sender: FDA-Public Use
  Company Number: 2007SP002556

PATIENT
  Age: 74 Year
  Sex: Male
  Weight: 66.6788 kg

DRUGS (8)
  1. LUNESTA [Suspect]
     Indication: INSOMNIA
     Dosage: 1 MG;HS;ORAL : 2 MG;HS;ORAL : 3 MG;HS;ORAL
     Route: 048
     Dates: start: 20060101, end: 20060101
  2. LUNESTA [Suspect]
     Indication: INSOMNIA
     Dosage: 1 MG;HS;ORAL : 2 MG;HS;ORAL : 3 MG;HS;ORAL
     Route: 048
     Dates: start: 20060101, end: 20070601
  3. LUNESTA [Suspect]
     Indication: INSOMNIA
     Dosage: 1 MG;HS;ORAL : 2 MG;HS;ORAL : 3 MG;HS;ORAL
     Route: 048
     Dates: start: 20070601
  4. PEPCID [Concomitant]
  5. ATORVASTATIN CALCIUM [Concomitant]
  6. LEVOTHYROXINE SODIUM [Concomitant]
  7. METOPROLOL [Concomitant]
  8. VALIUM [Concomitant]

REACTIONS (1)
  - INSOMNIA [None]
